FAERS Safety Report 4543422-0 (Version None)
Quarter: 2005Q1

REPORT INFORMATION
  Report Type: 
  Country: None (occurrence: None)
  Receive Date: 20050103
  Receipt Date: 20041012
  Transmission Date: 20050727
  Serious: No
  Sender: FDA-Public Use
  Company Number: DE-MERCK-0410DEU00422

PATIENT
  Age: 56 Year
  Sex: Female
  Weight: 78 kg

DRUGS (2)
  1. VIOXX [Suspect]
     Indication: POLYARTHRITIS
     Route: 048
     Dates: start: 19991101, end: 20040801
  2. PANTOPRAZOLE SODIUM [Concomitant]
     Indication: GASTRITIS
     Route: 065
     Dates: start: 19990101

REACTIONS (2)
  - HYPERTENSIVE HEART DISEASE [None]
  - OEDEMA [None]
